FAERS Safety Report 14412688 (Version 1)
Quarter: 2018Q1

REPORT INFORMATION
  Report Type: Report from Study
  Country: HK (occurrence: HK)
  Receive Date: 20180119
  Receipt Date: 20180119
  Transmission Date: 20180509
  Serious: Yes (Other)
  Sender: FDA-Public Use
  Company Number: HK-PFIZER INC-2018022700

PATIENT
  Age: 68 Year
  Sex: Male

DRUGS (3)
  1. PREDNISONE ACETATE [Suspect]
     Active Substance: PREDNISONE ACETATE
     Indication: PAIN
     Dosage: UNK
  2. DICLOFENAC [Suspect]
     Active Substance: DICLOFENAC
     Indication: PAIN
     Dosage: UNK
  3. PIROXICAM. [Suspect]
     Active Substance: PIROXICAM
     Indication: PAIN
     Dosage: UNK

REACTIONS (2)
  - Poisoning [Unknown]
  - Gastrointestinal haemorrhage [Unknown]
